FAERS Safety Report 19905942 (Version 4)
Quarter: 2023Q4

REPORT INFORMATION
  Report Type: Other
  Country: CA (occurrence: CA)
  Receive Date: 20211001
  Receipt Date: 20231006
  Transmission Date: 20240110
  Serious: Yes (Hospitalization, Other)
  Sender: FDA-Public Use
  Company Number: CA-APOTEX-2021AP043258

PATIENT
  Age: 47 Year
  Sex: Female

DRUGS (50)
  1. LORAZEPAM [Interacting]
     Active Substance: LORAZEPAM
     Indication: Withdrawal syndrome
     Dosage: UNK, QD (1 TO 2 MG)
     Route: 048
  2. LORAZEPAM [Interacting]
     Active Substance: LORAZEPAM
     Indication: Anxiety
     Dosage: 5 MILLIGRAM (DAY 3)
     Route: 048
  3. LORAZEPAM [Interacting]
     Active Substance: LORAZEPAM
     Indication: Affective disorder
     Dosage: 3 MILLIGRAM (DAY 4, 5 7 AND 9)
     Route: 048
  4. LORAZEPAM [Interacting]
     Active Substance: LORAZEPAM
     Dosage: 6 MILLIGRAM (2 MG DOSES) (DAY 6)
     Route: 048
  5. LORAZEPAM [Interacting]
     Active Substance: LORAZEPAM
     Dosage: 7 MILLIGRAM (DAY 8)
     Route: 048
  6. LORAZEPAM [Interacting]
     Active Substance: LORAZEPAM
     Dosage: 4 MILLIGRAM (DAY 10)
     Route: 048
  7. LORAZEPAM [Interacting]
     Active Substance: LORAZEPAM
     Dosage: 1 MILLIGRAM (DAY 11)
     Route: 048
  8. LORAZEPAM [Interacting]
     Active Substance: LORAZEPAM
     Dosage: UNK, QD (1 TO 7 MG) (UNTILL DAY 23 AS NEEDED))
     Route: 048
  9. DIVALPROEX SODIUM [Interacting]
     Active Substance: DIVALPROEX SODIUM
     Indication: Mania
     Dosage: 250 MILLIGRAM, Q.AM (DAY 5 AND 6)
     Route: 048
  10. DIVALPROEX SODIUM [Interacting]
     Active Substance: DIVALPROEX SODIUM
     Indication: Affective disorder
     Dosage: 500 MILLIGRAM, Q.H.S. (DAY 5 AND 6)
     Route: 048
  11. DIVALPROEX SODIUM [Interacting]
     Active Substance: DIVALPROEX SODIUM
     Dosage: 250 MILLIGRAM, Q.AM (DAY 8)
     Route: 048
  12. DIVALPROEX SODIUM [Interacting]
     Active Substance: DIVALPROEX SODIUM
     Dosage: 750 MILLIGRAM, Q.H.S. (DAY 8)
     Route: 048
  13. DIVALPROEX SODIUM [Interacting]
     Active Substance: DIVALPROEX SODIUM
     Dosage: 750 MILLIGRAM, QD
     Route: 048
  14. GABAPENTIN [Interacting]
     Active Substance: GABAPENTIN
     Indication: Scoliosis
     Dosage: 600 MILLIGRAM, TID
     Route: 048
  15. GABAPENTIN [Interacting]
     Active Substance: GABAPENTIN
     Indication: Pain
     Dosage: 600 MILLIGRAM, TID (DAY 2 TO 10)
     Route: 048
  16. GABAPENTIN [Interacting]
     Active Substance: GABAPENTIN
     Dosage: 400 MILLIGRAM, QID (DAY 11 AND 12)
     Route: 048
  17. CYCLOBENZAPRINE [Interacting]
     Active Substance: CYCLOBENZAPRINE
     Indication: Pain
     Dosage: 10 MILLIGRAM, BID
     Route: 048
  18. CYCLOBENZAPRINE [Interacting]
     Active Substance: CYCLOBENZAPRINE
     Indication: Scoliosis
     Dosage: 10 MILLIGRAM, BID (DAY 2 TO 6)
     Route: 048
  19. CYCLOBENZAPRINE [Interacting]
     Active Substance: CYCLOBENZAPRINE
     Dosage: 10 MILLIGRAM, BID- (DAY 10 AND 11)
     Route: 048
  20. CYCLOBENZAPRINE [Interacting]
     Active Substance: CYCLOBENZAPRINE
     Dosage: 10 MILLIGRAM, TID (AS NEEDED)
     Route: 048
  21. QUETIAPINE [Suspect]
     Active Substance: QUETIAPINE
     Indication: Affective disorder
     Dosage: 100 MILLIGRAM, Q.H.S. (DAY 5) EXTENDED RELEASE
     Route: 048
  22. QUETIAPINE [Suspect]
     Active Substance: QUETIAPINE
     Indication: Affective disorder
     Dosage: UNK UNK, QID (25 TO 50 MG AS NEEDED) IMMEDIATE RELEASE
     Route: 065
  23. DOXEPIN [Suspect]
     Active Substance: DOXEPIN
     Indication: Major depression
     Dosage: 150 MILLIGRAM, QD
     Route: 048
  24. DOXEPIN [Suspect]
     Active Substance: DOXEPIN
     Dosage: 150 MILLIGRAM, QD (DAY 2 TO DAY 4 OF ADMISSION)
     Route: 048
  25. DOXEPIN [Suspect]
     Active Substance: DOXEPIN
     Dosage: 100 MILLIGRAM, QD (DAY 5 TO 7 )
     Route: 048
  26. DOXEPIN [Suspect]
     Active Substance: DOXEPIN
     Dosage: 50 MILLIGRAM, QD (DAY 8 TO 10)
     Route: 048
  27. FLUOXETINE [Suspect]
     Active Substance: FLUOXETINE HYDROCHLORIDE
     Indication: Major depression
     Dosage: 80 MILLIGRAM, QD
     Route: 048
  28. FLUOXETINE [Suspect]
     Active Substance: FLUOXETINE HYDROCHLORIDE
     Dosage: 80 MILLIGRAM, QD (DAY 2 TO 4)
     Route: 048
  29. FLUOXETINE [Suspect]
     Active Substance: FLUOXETINE HYDROCHLORIDE
     Dosage: 60 MILLIGRAM, QD (DAY 5)
     Route: 048
  30. FLUOXETINE [Suspect]
     Active Substance: FLUOXETINE HYDROCHLORIDE
     Dosage: 40 MILLIGRAM, QD (DAY 6)
     Route: 048
  31. FLUOXETINE [Suspect]
     Active Substance: FLUOXETINE HYDROCHLORIDE
     Dosage: 20 MILLIGRAM, QD (DAY 7 AND 8)
     Route: 048
  32. RISPERIDONE [Suspect]
     Active Substance: RISPERIDONE
     Indication: Affective disorder
     Dosage: 1 MILLIGRAM, QD (DAY 2 TO 5)
     Route: 048
  33. METHADONE [Interacting]
     Active Substance: METHADONE HYDROCHLORIDE
     Indication: Drug use disorder
     Dosage: 75 MILLIGRAM, QD
     Route: 048
  34. METHADONE [Interacting]
     Active Substance: METHADONE HYDROCHLORIDE
     Dosage: 75 MILLIGRAM, QD (DAY 2 TO 6)
     Route: 048
  35. METHADONE [Interacting]
     Active Substance: METHADONE HYDROCHLORIDE
     Dosage: 30 MILLIGRAM, QD (DAY 8)
     Route: 048
  36. METHADONE [Interacting]
     Active Substance: METHADONE HYDROCHLORIDE
     Dosage: 40 MILLIGRAM, QD (DAY 9)
     Route: 048
  37. METHADONE [Interacting]
     Active Substance: METHADONE HYDROCHLORIDE
     Dosage: 50 MILLIGRAM, QD (DAY 10)
     Route: 048
  38. METHADONE [Interacting]
     Active Substance: METHADONE HYDROCHLORIDE
     Dosage: 60 MILLIGRAM, QD (DAY 11)
     Route: 048
  39. METHADONE [Interacting]
     Active Substance: METHADONE HYDROCHLORIDE
     Dosage: 30 MILLIGRAM, QD
     Route: 048
  40. ATENOLOL [Concomitant]
     Active Substance: ATENOLOL
     Indication: Hypertension
     Dosage: 50 MILLIGRAM, QD
     Route: 048
  41. ESTRADIOL [Concomitant]
     Active Substance: ESTRADIOL
     Indication: Endometriosis
     Dosage: 0.5 MILLIGRAM, QD
     Route: 048
  42. FUROSEMIDE [Concomitant]
     Active Substance: FUROSEMIDE
     Indication: Oedema peripheral
     Dosage: 40 MILLIGRAM, QD AS NEEDED
     Route: 048
  43. NAPROXEN [Concomitant]
     Active Substance: NAPROXEN
     Indication: Pain
     Dosage: 500 MILLIGRAM, BID AS NEEDED
     Route: 048
  44. NAPROXEN [Concomitant]
     Active Substance: NAPROXEN
     Indication: Scoliosis
  45. ALBUTEROL [Concomitant]
     Active Substance: ALBUTEROL
     Indication: Chronic obstructive pulmonary disease
     Dosage: 200 MICROGRAM, BID AS NEEDED
  46. TIOTROPIUM [Concomitant]
     Active Substance: TIOTROPIUM
     Indication: Chronic obstructive pulmonary disease
     Dosage: 5 MICROGRAM, QD
  47. CLONIDINE [Concomitant]
     Active Substance: CLONIDINE
     Indication: Drug withdrawal syndrome
     Dosage: 0.1 MILLIGRAM
     Route: 065
  48. CLONIDINE [Concomitant]
     Active Substance: CLONIDINE
     Dosage: UNK (TAPERING DOSES)
     Route: 065
  49. LORAZEPAM [Concomitant]
     Active Substance: LORAZEPAM
     Indication: Drug withdrawal syndrome
     Dosage: 1 MILLIGRAM
     Route: 030
  50. LORAZEPAM [Concomitant]
     Active Substance: LORAZEPAM
     Dosage: 1 MILLIGRAM, QD
     Route: 030

REACTIONS (7)
  - Drug interaction [Recovering/Resolving]
  - Off label use [Unknown]
  - Toxicity to various agents [Recovering/Resolving]
  - Multiple drug therapy [Recovering/Resolving]
  - Mania [Recovering/Resolving]
  - Depressed level of consciousness [Recovering/Resolving]
  - Respiratory depression [Recovering/Resolving]
